FAERS Safety Report 14868708 (Version 2)
Quarter: 2018Q2

REPORT INFORMATION
  Report Type: Spontaneous
  Country: US (occurrence: US)
  Receive Date: 20180509
  Receipt Date: 20180621
  Transmission Date: 20180711
  Serious: No
  Sender: FDA-Public Use
  Company Number: US-ASTRAZENECA-2018SE46603

PATIENT
  Sex: Male
  Weight: 136.1 kg

DRUGS (4)
  1. NOVOLOG INSULIN FLEXPEN [Concomitant]
     Indication: DIABETES MELLITUS
     Dosage: SLIDING SCALE 3 TIMES A DAY, HE TAKES 25 UNITS AFTER MEALS
     Route: 058
  2. BYDUREON BCISE [Suspect]
     Active Substance: EXENATIDE
     Indication: APPETITE DISORDER
     Route: 058
     Dates: start: 20180401
  3. TRECIBA [Concomitant]
     Indication: DIABETES MELLITUS
     Route: 058
  4. BYDUREON BCISE [Suspect]
     Active Substance: EXENATIDE
     Indication: DIABETES MELLITUS
     Route: 058
     Dates: start: 20180401

REACTIONS (4)
  - Intentional device misuse [Unknown]
  - Injection site injury [Unknown]
  - Needle issue [Unknown]
  - Device leakage [Unknown]
